FAERS Safety Report 8964230 (Version 1)
Quarter: 2012Q4

REPORT INFORMATION
  Report Type: 
  Country: US (occurrence: US)
  Receive Date: 20121214
  Receipt Date: 20121214
  Transmission Date: 20130627
  Serious: Yes (Other)
  Sender: FDA-Public Use
  Company Number: US-BAYER-2012-129758

PATIENT
  Age: 24 Year
  Sex: Female

DRUGS (17)
  1. YASMIN [Suspect]
  2. GIANVI [Suspect]
  3. OCELLA [Suspect]
  4. ONDANSETRON [Concomitant]
     Dosage: 4 mg, UNK
     Route: 048
     Dates: start: 20100726
  5. OXYCODONE W/PARACETAMOL [Concomitant]
     Dosage: 5-325mg
     Route: 048
     Dates: start: 20100726, end: 20100921
  6. PROMETHAZINE [Concomitant]
     Dosage: 25 mg, UNK
     Route: 048
     Dates: start: 20100727, end: 20100802
  7. AMITRIPTYLINE HCL [Concomitant]
     Dosage: UNK
     Route: 048
     Dates: start: 20100730, end: 20100928
  8. PREDNISONE [Concomitant]
     Dosage: 10 mg, UNK
     Route: 048
     Dates: start: 20100730
  9. INDOMETHACIN [Concomitant]
     Dosage: 50 mcg/24hr, UNK
     Route: 048
     Dates: start: 20100813
  10. BUTORPHANOL [Concomitant]
     Dosage: 10 mcg/mL, UNK
     Route: 045
     Dates: start: 20100816
  11. DIAZEPAM [Concomitant]
     Dosage: 5 mg, UNK
     Route: 048
     Dates: start: 20100817, end: 20100921
  12. MAXALT [Concomitant]
     Dosage: 10 mg, UNK
     Route: 048
     Dates: start: 20100818
  13. TOPIRAMATE [Concomitant]
     Dosage: 25 mg, UNK
     Route: 048
     Dates: start: 20100818, end: 20100914
  14. PAROXETINE HCL (INTERPRETED AS HYDROCHLORIDE) [Concomitant]
     Dosage: 40 mg, UNK
     Route: 048
     Dates: start: 20100818, end: 20100914
  15. ROPINIROLE HYDROCHLORIDE [Concomitant]
     Dosage: 0.25 mg, UNK
     Route: 048
     Dates: start: 20100818, end: 20100914
  16. ZOMIG [Concomitant]
     Dosage: 5 mg, UNK
     Route: 048
     Dates: start: 20100907
  17. GABAPENTIN [Concomitant]
     Dosage: 600 mg, UNK
     Route: 048
     Dates: start: 20100908

REACTIONS (1)
  - Pulmonary embolism [Recovered/Resolved]
